FAERS Safety Report 9384256 (Version 1)
Quarter: 2013Q3

REPORT INFORMATION
  Report Type: Spontaneous
  Country: DE (occurrence: DE)
  Receive Date: 20130705
  Receipt Date: 20130705
  Transmission Date: 20140515
  Serious: Yes (Hospitalization)
  Sender: FDA-Public Use
  Company Number: DE-RANBAXY-2013R1-70810

PATIENT
  Age: 66 Year
  Sex: Female

DRUGS (2)
  1. IBUPROFEN [Suspect]
     Indication: PRODUCT USED FOR UNKNOWN INDICATION
     Dosage: UNK
     Route: 065
  2. FLUPIRTINE [Suspect]
     Indication: PAIN
     Dosage: 1 DF, QD
     Route: 065
     Dates: start: 201211, end: 201304

REACTIONS (5)
  - Abdominal pain upper [Recovering/Resolving]
  - Eructation [Recovering/Resolving]
  - Hepatitis cholestatic [Recovering/Resolving]
  - Somnolence [Recovering/Resolving]
  - Weight decreased [Recovering/Resolving]
